FAERS Safety Report 23315478 (Version 1)
Quarter: 2023Q4

REPORT INFORMATION
  Report Type: Spontaneous
  Country: US (occurrence: US)
  Receive Date: 20231219
  Receipt Date: 20231219
  Transmission Date: 20240110
  Serious: No
  Sender: FDA-Public Use
  Company Number: US-ORG100016242-2023000031

PATIENT
  Sex: Male
  Weight: 97 kg

DRUGS (2)
  1. EXPAREL [Suspect]
     Active Substance: BUPIVACAINE
     Indication: Surgery
     Route: 065
     Dates: start: 20230221
  2. STERILE WATER [Suspect]
     Active Substance: WATER
     Indication: Surgery
     Route: 065
     Dates: start: 20230221

REACTIONS (2)
  - No adverse event [Unknown]
  - Product preparation issue [Unknown]

NARRATIVE: CASE EVENT DATE: 20230221
